FAERS Safety Report 13611929 (Version 1)
Quarter: 2017Q2

REPORT INFORMATION
  Report Type: Spontaneous
  Country: US (occurrence: US)
  Receive Date: 20170605
  Receipt Date: 20170605
  Transmission Date: 20170830
  Serious: No
  Sender: FDA-Public Use
  Company Number: None

PATIENT
  Age: 47 Year
  Sex: Male
  Weight: 123 kg

DRUGS (1)
  1. MECLIZINE [Suspect]
     Active Substance: MECLIZINE HYDROCHLORIDE
     Indication: VERTIGO
     Dosage: ?          OTHER FREQUENCY:ONCE;?
     Route: 048

REACTIONS (3)
  - Tremor [None]
  - Unresponsive to stimuli [None]
  - Eye movement disorder [None]

NARRATIVE: CASE EVENT DATE: 20170525
